FAERS Safety Report 5626569-7 (Version None)
Quarter: 2008Q1

REPORT INFORMATION
  Report Type: 
  Country: None (occurrence: None)
  Receive Date: 20080214
  Receipt Date: 20080119
  Transmission Date: 20080703
  Serious: No
  Sender: FDA-Public Use
  Company Number: US-BAXTER-2008BH000620

PATIENT
  Age: 54 Year
  Sex: Female
  Weight: 130 kg

DRUGS (7)
  1. HEPARIN SODIUM [Suspect]
     Indication: PROPHYLAXIS
     Route: 033
     Dates: start: 20080117, end: 20080119
  2. DIANEAL [Concomitant]
     Indication: RENAL FAILURE CHRONIC
     Route: 033
     Dates: start: 20080117
  3. OMEPRAZOLE [Concomitant]
     Indication: GASTROOESOPHAGEAL REFLUX DISEASE
     Route: 048
     Dates: start: 19980101
  4. LABETALOL HCL [Concomitant]
     Indication: HYPERTENSION
     Route: 048
     Dates: start: 20070101
  5. COLACE [Concomitant]
     Indication: FAECES HARD
     Route: 048
  6. LOVASTATIN [Concomitant]
     Indication: HYPERLIPIDAEMIA
     Route: 048
     Dates: start: 20071226
  7. PHOSLO [Concomitant]
     Indication: DRUG USE FOR UNKNOWN INDICATION
     Route: 048
     Dates: start: 20070301

REACTIONS (1)
  - DYSPNOEA [None]
